FAERS Safety Report 11954907 (Version 1)
Quarter: 2016Q1

REPORT INFORMATION
  Report Type: Report from Study
  Country: US (occurrence: US)
  Receive Date: 20160126
  Receipt Date: 20160126
  Transmission Date: 20160526
  Serious: No
  Sender: FDA-Public Use
  Company Number: US-ABBVIE-15K-163-1364883-00

PATIENT
  Age: 58 Year
  Sex: Female
  Weight: 93.07 kg

DRUGS (16)
  1. HUMIRA [Suspect]
     Active Substance: ADALIMUMAB
     Indication: RHEUMATOID ARTHRITIS
     Route: 065
     Dates: start: 20150318
  2. METHOTREXATE [Suspect]
     Active Substance: METHOTREXATE
     Dosage: DECREASED DOSE
     Route: 048
     Dates: start: 2014, end: 201412
  3. VITAMIN D [Concomitant]
     Active Substance: CHOLECALCIFEROL
     Indication: PRODUCT USED FOR UNKNOWN INDICATION
  4. VITAMIN C [Concomitant]
     Active Substance: ASCORBIC ACID
     Indication: SUPPLEMENTATION THERAPY
  5. METHOTREXATE [Suspect]
     Active Substance: METHOTREXATE
     Indication: RHEUMATOID ARTHRITIS
     Route: 048
  6. FISH OIL [Concomitant]
     Active Substance: FISH OIL
     Indication: PRODUCT USED FOR UNKNOWN INDICATION
  7. MOTRIN [Concomitant]
     Active Substance: IBUPROFEN
     Indication: PAIN
  8. METHOTREXATE [Suspect]
     Active Substance: METHOTREXATE
     Route: 050
  9. PREDNISONE. [Concomitant]
     Active Substance: PREDNISONE
     Indication: RHEUMATOID ARTHRITIS
  10. HUMIRA [Suspect]
     Active Substance: ADALIMUMAB
     Indication: RHEUMATOID ARTHRITIS
     Route: 065
     Dates: start: 201312, end: 201503
  11. METHOTREXATE [Suspect]
     Active Substance: METHOTREXATE
     Dosage: INCREASED DOSE
     Route: 048
     Dates: start: 201412
  12. PROBIOTIC [Concomitant]
     Active Substance: PROBIOTICS NOS
     Indication: PRODUCT USED FOR UNKNOWN INDICATION
  13. FOLIC ACID. [Concomitant]
     Active Substance: FOLIC ACID
     Indication: VITAMIN SUPPLEMENTATION
  14. IRON [Concomitant]
     Active Substance: IRON
     Indication: IRON DEFICIENCY
  15. CALCIUM MAGNESIUM [Concomitant]
     Active Substance: CALCIUM\MAGNESIUM
     Indication: PRODUCT USED FOR UNKNOWN INDICATION
  16. TYLENOL [Concomitant]
     Active Substance: ACETAMINOPHEN
     Indication: PAIN

REACTIONS (12)
  - Fatigue [Recovered/Resolved]
  - Wrong technique in product usage process [Not Recovered/Not Resolved]
  - Nausea [Recovered/Resolved]
  - Injection site pruritus [Unknown]
  - Incorrect dose administered [Not Recovered/Not Resolved]
  - Rheumatoid arthritis [Recovered/Resolved]
  - Vulvovaginal mycotic infection [Recovered/Resolved]
  - Injection site erythema [Unknown]
  - Rheumatoid arthritis [Not Recovered/Not Resolved]
  - Rheumatoid arthritis [Recovered/Resolved]
  - Sinusitis [Recovered/Resolved]
  - Vulvovaginal pruritus [Recovered/Resolved]

NARRATIVE: CASE EVENT DATE: 2014
